FAERS Safety Report 7231267-2 (Version None)
Quarter: 2011Q1

REPORT INFORMATION
  Report Type: 
  Country: None (occurrence: None)
  Receive Date: 20110118
  Receipt Date: 20101229
  Transmission Date: 20110831
  Serious: No
  Sender: FDA-Public Use
  Company Number: US-B.I. PHARMACEUTICALS,INC./RIDGEFIELD-2011-BP-00403BP

PATIENT
  Age: 70 Year
  Sex: Female
  Weight: 120.01 kg

DRUGS (11)
  1. LEVOTHYROXINE [Concomitant]
     Indication: THYROID DISORDER
  2. LANTUS [Concomitant]
     Indication: DIABETES MELLITUS
  3. WARFARIN SODIUM [Concomitant]
  4. CRESTOR [Suspect]
     Indication: BLOOD CHOLESTEROL
     Dates: start: 20101205
  5. LISINOPRIL [Concomitant]
     Indication: CARDIAC DISORDER
  6. LISINOPRIL [Concomitant]
     Indication: HYPERTENSION
  7. PRADAXA [Suspect]
     Indication: ATRIAL FIBRILLATION
     Dosage: 300 MG
     Route: 048
     Dates: start: 20101205, end: 20101229
  8. IMDUR [Concomitant]
     Indication: CHEST PAIN
  9. TOPROL-XL [Concomitant]
     Indication: PROPHYLAXIS
  10. TOPROL-XL [Concomitant]
     Indication: ATRIAL FIBRILLATION
  11. STATIN THERAPY [Concomitant]

REACTIONS (4)
  - CONDITION AGGRAVATED [None]
  - GASTRITIS [None]
  - DIARRHOEA [None]
  - MUSCULOSKELETAL DISCOMFORT [None]
